FAERS Safety Report 22324998 (Version 2)
Quarter: 2023Q2

REPORT INFORMATION
  Report Type: Spontaneous
  Country: US (occurrence: US)
  Receive Date: 20230516
  Receipt Date: 20230613
  Transmission Date: 20230721
  Serious: No
  Sender: FDA-Public Use
  Company Number: US-SA-SAC20230515000594

PATIENT
  Age: 69 Year
  Sex: Female

DRUGS (8)
  1. DUPIXENT [Suspect]
     Active Substance: DUPILUMAB
     Indication: Asthma
     Dosage: 600 MG, 1X
     Route: 058
     Dates: start: 202211, end: 202211
  2. DUPIXENT [Suspect]
     Active Substance: DUPILUMAB
     Indication: Seasonal allergy
     Dosage: 300 MG, QOW
     Route: 058
  3. DUPIXENT [Suspect]
     Active Substance: DUPILUMAB
     Indication: Rhinitis allergic
  4. DUPIXENT [Suspect]
     Active Substance: DUPILUMAB
     Indication: Bronchiectasis
  5. DUPIXENT [Suspect]
     Active Substance: DUPILUMAB
     Indication: Asthma
     Dosage: 600 MG, 1X
     Route: 058
     Dates: start: 202211, end: 202211
  6. DUPIXENT [Suspect]
     Active Substance: DUPILUMAB
     Indication: Bronchiectasis
     Dosage: 300 MG, QOW
     Route: 058
     Dates: start: 2022
  7. DUPIXENT [Suspect]
     Active Substance: DUPILUMAB
     Indication: Rhinitis allergic
  8. DUPIXENT [Suspect]
     Active Substance: DUPILUMAB
     Indication: Seasonal allergy

REACTIONS (11)
  - Eye inflammation [Unknown]
  - Eye pruritus [Unknown]
  - Eye swelling [Unknown]
  - Ocular hyperaemia [Unknown]
  - Blepharitis [Unknown]
  - Swelling of eyelid [Unknown]
  - Erythema of eyelid [Unknown]
  - Eyelids pruritus [Unknown]
  - Dry eye [Unknown]
  - Lacrimation increased [Unknown]
  - Product use in unapproved indication [Unknown]

NARRATIVE: CASE EVENT DATE: 20221101
